FAERS Safety Report 5869674-2 (Version None)
Quarter: 2008Q3

REPORT INFORMATION
  Report Type: 
  Country: None (occurrence: None)
  Receive Date: 20080904
  Receipt Date: 20080822
  Transmission Date: 20090109
  Serious: Yes (Other)
  Sender: FDA-Public Use
  Company Number: US-ELI_LILLY_AND_COMPANY-US200806000617

PATIENT
  Age: 67 Year
  Sex: Female
  Weight: 73.469 kg

DRUGS (1)
  1. FORTEO [Suspect]
     Indication: OSTEOPOROSIS
     Dosage: 20 UG, DAILY (1/D)
     Dates: start: 20071106, end: 20080624

REACTIONS (2)
  - ASTHENIA [None]
  - COLORECTAL CANCER RECURRENT [None]
